FAERS Safety Report 12399161 (Version 5)
Quarter: 2016Q3

REPORT INFORMATION
  Report Type: Spontaneous
  Country: HU (occurrence: HU)
  Receive Date: 20160524
  Receipt Date: 20160809
  Transmission Date: 20161109
  Serious: Yes (Hospitalization)
  Sender: FDA-Public Use
  Company Number: HU-PFIZER INC-2015408441

PATIENT
  Age: 55 Year
  Sex: Male

DRUGS (5)
  1. SUTENT [Suspect]
     Active Substance: SUNITINIB MALATE
     Dosage: 50 MG, CYCLIC (50 MG, 1X/DAY, 2/1 SCHEMA)
     Route: 048
     Dates: start: 20151214, end: 20160110
  2. SUTENT [Suspect]
     Active Substance: SUNITINIB MALATE
     Dosage: 50 MG, CYCLIC (3RD CYCLE, 50 MG 1X/DAY, 2/1 SCHEMA)
     Route: 048
     Dates: start: 20160125
  3. SUTENT [Suspect]
     Active Substance: SUNITINIB MALATE
     Dosage: 37.5 MG DAILY CYCLIC (5TH CYCLE, 4/2 SCHEMA)
     Route: 048
     Dates: start: 20160418, end: 20160509
  4. SUTENT [Suspect]
     Active Substance: SUNITINIB MALATE
     Indication: RENAL CANCER
     Dosage: 50 MG, CYCLIC (1ST CYCLE, 50 MG, 1X/DAY, 4/2 SCHEMA)
     Route: 048
     Dates: start: 20151102
  5. SUTENT [Suspect]
     Active Substance: SUNITINIB MALATE
     Dosage: 50 MG, CYCLIC (4RD CYCLE, 50 MG 1X/DAY, 2/1 SCHEMA)
     Route: 048
     Dates: start: 20160307

REACTIONS (25)
  - Asthenia [Not Recovered/Not Resolved]
  - Anaemia [Recovered/Resolved]
  - Rash [Recovered/Resolved]
  - Palmar-plantar erythrodysaesthesia syndrome [Not Recovered/Not Resolved]
  - Neck pain [Not Recovered/Not Resolved]
  - Back pain [Not Recovered/Not Resolved]
  - Epistaxis [Unknown]
  - Headache [Recovered/Resolved]
  - Oral mucosal blistering [Recovered/Resolved]
  - Oral mucosal eruption [Recovered/Resolved]
  - Glossodynia [Recovered/Resolved]
  - Oral pain [Unknown]
  - Tongue eruption [Recovered/Resolved]
  - Mucosal inflammation [Unknown]
  - Disease progression [Unknown]
  - Renal cancer [Unknown]
  - Fatigue [Not Recovered/Not Resolved]
  - Vomiting [Recovered/Resolved]
  - Lip blister [Recovered/Resolved]
  - Tongue blistering [Recovered/Resolved]
  - Eating disorder [Recovered/Resolved]
  - Tongue discolouration [Recovered/Resolved]
  - Pathological fracture [Recovered/Resolved]
  - Nausea [Recovered/Resolved]
  - Musculoskeletal pain [Not Recovered/Not Resolved]

NARRATIVE: CASE EVENT DATE: 201511
